FAERS Safety Report 5209001-7 (Version None)
Quarter: 2007Q1

REPORT INFORMATION
  Report Type: 
  Country: None (occurrence: None)
  Receive Date: 20070116
  Receipt Date: 20070112
  Transmission Date: 20070707
  Serious: Yes (Disabling)
  Sender: FDA-Public Use
  Company Number: DK-GLAXOSMITHKLINE-B0454200A

PATIENT
  Sex: Female
  Weight: 70 kg

DRUGS (1)
  1. AVANDAMET [Suspect]
     Indication: DIABETES MELLITUS NON-INSULIN-DEPENDENT
     Route: 048
     Dates: start: 20050513, end: 20060621

REACTIONS (3)
  - ANAEMIA [None]
  - LIVER DISORDER [None]
  - WEIGHT INCREASED [None]
